FAERS Safety Report 15855062 (Version 3)
Quarter: 2019Q1

REPORT INFORMATION
  Report Type: Spontaneous
  Country: ES (occurrence: ES)
  Receive Date: 20190122
  Receipt Date: 20190204
  Transmission Date: 20190417
  Serious: Yes (Other)
  Sender: FDA-Public Use
  Company Number: ES-ASTRAZENECA-2019SE07547

PATIENT
  Age: 69 Year
  Sex: Female
  Weight: 80 kg

DRUGS (3)
  1. CA + VIT. D [Concomitant]
     Indication: OSTEOPOROSIS
     Route: 048
  2. FULVESTRANT. [Suspect]
     Active Substance: FULVESTRANT
     Indication: INVASIVE DUCTAL BREAST CARCINOMA
     Dosage: DAYS 1, 14 AND 28, AND LATER EVERY 28 DAYS
     Route: 030
     Dates: start: 201311
  3. FULVESTRANT. [Suspect]
     Active Substance: FULVESTRANT
     Indication: BREAST CANCER
     Dosage: DAYS 1, 14 AND 28, AND LATER EVERY 28 DAYS
     Route: 030
     Dates: start: 201311

REACTIONS (4)
  - Injection site reaction [Unknown]
  - Malignant neoplasm progression [Unknown]
  - Injection site erythema [Recovered/Resolved]
  - Therapy partial responder [Unknown]

NARRATIVE: CASE EVENT DATE: 201311
